FAERS Safety Report 7456065-6 (Version None)
Quarter: 2011Q2

REPORT INFORMATION
  Report Type: 
  Country: None (occurrence: None)
  Receive Date: 20110503
  Receipt Date: 20110425
  Transmission Date: 20111010
  Serious: Yes (Other)
  Sender: FDA-Public Use
  Company Number: US-PFIZER INC-2011089235

PATIENT
  Sex: Male
  Weight: 117.91 kg

DRUGS (7)
  1. COZAAR [Concomitant]
     Indication: CARDIAC DISORDER
     Dosage: UNK
  2. FUROSEMIDE [Concomitant]
     Indication: DIURETIC THERAPY
     Dosage: UNK
  3. ACTOS [Concomitant]
     Dosage: UNK
  4. POTASSIUM [Concomitant]
  5. NITROGLYCERIN [Concomitant]
     Indication: CARDIAC DISORDER
     Dosage: UNK
  6. LYRICA [Suspect]
     Indication: DIABETIC NEUROPATHY
     Dosage: UNK
  7. DILTIAZEM [Concomitant]
     Indication: CARDIAC DISORDER
     Dosage: UNK

REACTIONS (3)
  - NEUROPATHY PERIPHERAL [None]
  - BURNING SENSATION [None]
  - FEELING ABNORMAL [None]
